FAERS Safety Report 7972506-X (Version None)
Quarter: 2011Q4

REPORT INFORMATION
  Report Type: 
  Country: None (occurrence: None)
  Receive Date: 20111122
  Receipt Date: 20110509
  Transmission Date: 20120403
  Serious: No
  Sender: FDA-Public Use
  Company Number: PHHY2011US39065

PATIENT
  Age: 56 Year
  Sex: Female

DRUGS (22)
  1. GELATIN (GELATIN) [Concomitant]
  2. BACLOFEN [Concomitant]
  3. LECITHIN (LECITHIN) [Concomitant]
  4. 2 FIBER CHOICE TABLETS [Concomitant]
  5. GILENYA [Suspect]
     Indication: MULTIPLE SCLEROSIS
     Dosage: 0.5 MG, QD, ORAL
     Route: 048
     Dates: start: 20110426
  6. SKELAXIN [Concomitant]
  7. MULTIVITAMINS (ASCORBIC ACID, ERGOCALCIFEROL, FOLIC ACID, NICOTINAMIDE [Concomitant]
  8. LYSINE (LYSINE) [Concomitant]
  9. GINSENG (GINSENG, GINSENG NOS) [Concomitant]
  10. SOY ISOFLAVONES (GLYCINE MAX EXTRACT) [Concomitant]
  11. CALCIUM CARBONATE [Concomitant]
  12. MRGA-T GREEN TEA [Concomitant]
  13. COD LIVER OIL FORTIFIED TAB [Concomitant]
  14. GINKGO BILOBA (GINKGO BILOBA) [Concomitant]
  15. SUNDOWN NATURAL WATER PILL [Concomitant]
  16. FLAXSEED OIL (LINUM USITATISSIMUM SEED OIL) [Concomitant]
  17. ROPINIROLE [Concomitant]
  18. MELATONIN (MELATONIN) [Concomitant]
  19. AVONEX [Concomitant]
  20. GABAPENTIN [Concomitant]
  21. NUVIGIL [Concomitant]
  22. BUTALBITAL [Concomitant]

REACTIONS (4)
  - FOREIGN BODY SENSATION IN EYES [None]
  - EYE IRRITATION [None]
  - EYE PAIN [None]
  - OCULAR HYPERAEMIA [None]
